FAERS Safety Report 15107247 (Version 3)
Quarter: 2018Q3

REPORT INFORMATION
  Report Type: Spontaneous
  Country: FR (occurrence: FR)
  Receive Date: 20180704
  Receipt Date: 20180724
  Transmission Date: 20181010
  Serious: Yes (Hospitalization, Other)
  Sender: FDA-Public Use
  Company Number: FR-GLAXOSMITHKLINE-FR2018116025

PATIENT
  Age: 60 Year
  Sex: Male

DRUGS (27)
  1. FLUCONAZOLE. [Suspect]
     Active Substance: FLUCONAZOLE
     Indication: PRODUCT USED FOR UNKNOWN INDICATION
     Dosage: 400 MG, UNK
     Route: 042
  2. PIPERACILLIN SODIUM + TAZOBACTAM SODIUM [Suspect]
     Active Substance: PIPERACILLIN SODIUM\TAZOBACTAM SODIUM
     Indication: FEBRILE BONE MARROW APLASIA
     Dosage: 16 G, QD
     Route: 065
     Dates: start: 20180413
  3. BACTRIM [Suspect]
     Active Substance: SULFAMETHOXAZOLE\TRIMETHOPRIM
     Indication: PRODUCT USED FOR UNKNOWN INDICATION
     Dosage: 800MG/160MG FOR 7 DAYS
     Route: 048
     Dates: start: 20180411, end: 20180419
  4. AMLODIPINE [Suspect]
     Active Substance: AMLODIPINE BESYLATE
     Indication: HYPERTENSION
     Dosage: 10 MG, QD
     Route: 048
     Dates: start: 20180509
  5. TRISENOX [Suspect]
     Active Substance: ARSENIC TRIOXIDE
     Dosage: 12.75 MG, CYC
     Route: 042
     Dates: start: 20180411, end: 20180420
  6. ALPRAZOLAM. [Suspect]
     Active Substance: ALPRAZOLAM
     Indication: ANXIETY
     Dosage: 0.75 MG, QD
     Route: 048
     Dates: start: 20180512
  7. LINEZOLID. [Suspect]
     Active Substance: LINEZOLID
     Indication: FEBRILE BONE MARROW APLASIA
     Dosage: 600 MG, UNK
     Route: 042
     Dates: start: 20180503, end: 20180517
  8. VESANOID [Suspect]
     Active Substance: TRETINOIN
     Dosage: 90 MG, QD
     Route: 048
     Dates: start: 20180509
  9. ZOLPIDEM [Concomitant]
     Active Substance: ZOLPIDEM\ZOLPIDEM TARTRATE
     Indication: PRODUCT USED FOR UNKNOWN INDICATION
     Dosage: 5 MG, UNK
     Route: 065
  10. TRETINOIN. [Suspect]
     Active Substance: TRETINOIN
     Dosage: UNK
     Route: 065
     Dates: start: 20180503
  11. ARSENIC TRIOXIDE [Suspect]
     Active Substance: ARSENIC TRIOXIDE
     Dosage: 12.75 MG, QD
     Route: 065
     Dates: start: 20180511, end: 20180515
  12. VESANOID [Suspect]
     Active Substance: TRETINOIN
     Indication: ACUTE MYELOID LEUKAEMIA
     Dosage: 90 MG, QD
     Route: 048
     Dates: start: 20180411, end: 20180420
  13. TRISENOX [Suspect]
     Active Substance: ARSENIC TRIOXIDE
     Indication: PRODUCT USED FOR UNKNOWN INDICATION
     Dosage: CYCLICAL
     Route: 042
     Dates: start: 20180522
  14. CANCIDAS [Suspect]
     Active Substance: CASPOFUNGIN ACETATE
     Indication: FEBRILE BONE MARROW APLASIA
     Dosage: 70 MG, QD
     Route: 042
     Dates: start: 20180503
  15. ARSENIC TRIOXIDE [Suspect]
     Active Substance: ARSENIC TRIOXIDE
     Indication: ACUTE MYELOID LEUKAEMIA
     Dosage: 12.75 MG, QD
     Route: 065
     Dates: start: 20180411, end: 20180420
  16. PANTOPRAZOLE [Suspect]
     Active Substance: PANTOPRAZOLE
     Indication: ABDOMINAL PAIN UPPER
     Dosage: 20 MG, QD
     Route: 048
     Dates: start: 20180424, end: 20180519
  17. CETIRIZINE HYDROCHLORIDE. [Suspect]
     Active Substance: CETIRIZINE HYDROCHLORIDE
     Indication: URTICARIA
     Dosage: 10 MG, QD
     Route: 048
     Dates: start: 20180414, end: 20180423
  18. ZELITREX [Suspect]
     Active Substance: VALACYCLOVIR HYDROCHLORIDE
     Indication: ANTIVIRAL PROPHYLAXIS
     Dosage: 500 MG, QD
     Route: 048
     Dates: start: 20180411
  19. TRISENOX [Suspect]
     Active Substance: ARSENIC TRIOXIDE
     Dosage: 12.75 MG, CYC
     Route: 042
     Dates: start: 20180511, end: 20180515
  20. TRISENOX [Suspect]
     Active Substance: ARSENIC TRIOXIDE
     Dosage: 12.75 MG, CYC
     Route: 042
     Dates: start: 20180518, end: 20180521
  21. ARSENIC TRIOXIDE [Suspect]
     Active Substance: ARSENIC TRIOXIDE
     Dosage: 12.75 MG, QD
     Route: 065
     Dates: start: 20180518, end: 20180521
  22. ARSENIC TRIOXIDE [Suspect]
     Active Substance: ARSENIC TRIOXIDE
     Dosage: 12.75 MG, QD
     Route: 065
     Dates: start: 20180522
  23. CASPOFUNGIN ACETATE. [Suspect]
     Active Substance: CASPOFUNGIN ACETATE
     Indication: FEBRILE BONE MARROW APLASIA
     Dosage: 70 MG, QD
     Route: 065
     Dates: start: 20180503
  24. TRETINOIN. [Suspect]
     Active Substance: TRETINOIN
     Indication: ACUTE MYELOID LEUKAEMIA
     Dosage: 90 MG, QD
     Route: 065
     Dates: start: 20180411, end: 20180420
  25. TAZOCILLINE [Suspect]
     Active Substance: PIPERACILLIN SODIUM\TAZOBACTAM SODIUM
     Indication: FEBRILE BONE MARROW APLASIA
     Dosage: 16 G, QD
     Route: 042
     Dates: start: 20180413
  26. HYDREA [Concomitant]
     Active Substance: HYDROXYUREA
     Indication: PRODUCT USED FOR UNKNOWN INDICATION
     Dosage: UNK, TID
     Route: 065
     Dates: start: 20180421
  27. HYDREA [Concomitant]
     Active Substance: HYDROXYUREA
     Dosage: UNK
     Route: 065
     Dates: start: 20180523, end: 20180527

REACTIONS (8)
  - Hypomagnesaemia [Unknown]
  - Platelet count decreased [Unknown]
  - Electrocardiogram QT prolonged [Recovered/Resolved]
  - Hyperleukocytosis [Unknown]
  - Urticaria [Unknown]
  - Hypokalaemia [Unknown]
  - Acute promyelocytic leukaemia differentiation syndrome [Unknown]
  - Blood creatinine increased [Unknown]

NARRATIVE: CASE EVENT DATE: 20180420
